FAERS Safety Report 9635393 (Version 6)
Quarter: 2016Q2

REPORT INFORMATION
  Report Type: Spontaneous
  Country: US (occurrence: US)
  Receive Date: 20131021
  Receipt Date: 20160427
  Transmission Date: 20160815
  Serious: Yes (Hospitalization, Disabling, Other)
  Sender: FDA-Public Use
  Company Number: US-009507513-1208USA009505

PATIENT
  Sex: Female
  Weight: 70.3 kg

DRUGS (6)
  1. ALENDRONATE SODIUM. [Suspect]
     Active Substance: ALENDRONATE SODIUM
     Indication: OSTEOPOROSIS
     Dosage: 70 MG, UNK
     Route: 048
     Dates: start: 20090320, end: 20101108
  2. FOSAMAX [Suspect]
     Active Substance: ALENDRONATE SODIUM
     Indication: OSTEOPOROSIS
     Dosage: 70 MG, QW
     Route: 048
     Dates: start: 1996, end: 20080101
  3. ALENDRONATE SODIUM. [Suspect]
     Active Substance: ALENDRONATE SODIUM
     Indication: OSTEOPOROSIS
     Dosage: 70 MG, UNKNOWN
     Route: 048
     Dates: start: 2003, end: 2005
  4. ALENDRONATE SODIUM. [Suspect]
     Active Substance: ALENDRONATE SODIUM
     Dosage: 70 MG, UNKNOWN
     Route: 048
     Dates: start: 2008, end: 2009
  5. FOSAMAX [Suspect]
     Active Substance: ALENDRONATE SODIUM
     Dosage: 70 MG, UNK
     Route: 048
     Dates: start: 2009, end: 2011
  6. PREMARIN [Concomitant]
     Active Substance: ESTROGENS, CONJUGATED
     Indication: PRODUCT USED FOR UNKNOWN INDICATION
     Dosage: 0.625 MG, UNK
     Route: 065
     Dates: start: 1986, end: 2009

REACTIONS (41)
  - Lumbar spinal stenosis [Unknown]
  - Osteoarthritis [Unknown]
  - Ileus [Unknown]
  - Spinal fracture [Unknown]
  - Vitamin D decreased [Unknown]
  - Joint injury [Unknown]
  - Myalgia [Unknown]
  - Asthenia [Unknown]
  - Lumbar spinal stenosis [Unknown]
  - Fracture [Unknown]
  - Depression [Unknown]
  - Rib fracture [Unknown]
  - Femur fracture [Not Recovered/Not Resolved]
  - Hypertension [Unknown]
  - Blood cholesterol increased [Unknown]
  - Clavicle fracture [Unknown]
  - Intervertebral disc protrusion [Unknown]
  - Arthropathy [Unknown]
  - Osteoarthritis [Unknown]
  - Osteoarthritis [Unknown]
  - Lumbar spinal stenosis [Unknown]
  - Sensory loss [Unknown]
  - Fatigue [Unknown]
  - Osteoarthritis [Unknown]
  - Carotid artery disease [Unknown]
  - Peritonitis [Unknown]
  - Osteoarthritis [Unknown]
  - Fall [Unknown]
  - Osteoarthritis [Unknown]
  - Migraine [Unknown]
  - Influenza [Unknown]
  - Kidney infection [Unknown]
  - Infection [Unknown]
  - Lumbar spinal stenosis [Unknown]
  - Peroneal nerve palsy [Recovering/Resolving]
  - Lumbar spinal stenosis [Unknown]
  - Lumbar spinal stenosis [Unknown]
  - Osteoarthritis [Unknown]
  - Fracture [Unknown]
  - Back pain [Unknown]
  - Sciatica [Unknown]

NARRATIVE: CASE EVENT DATE: 1997
